FAERS Safety Report 9344711 (Version 1)
Quarter: 2013Q2

REPORT INFORMATION
  Report Type: Spontaneous
  Country: US (occurrence: US)
  Receive Date: 20130612
  Receipt Date: 20130612
  Transmission Date: 20140414
  Serious: Yes (Other)
  Sender: FDA-Public Use
  Company Number: US-PFIZER INC-2013173528

PATIENT
  Age: 6 Year
  Sex: Male
  Weight: 15.87 kg

DRUGS (9)
  1. GENOTROPIN [Suspect]
     Indication: BLOOD GROWTH HORMONE
     Dosage: 1 MG, 1X/DAY
  2. ALBUTEROL [Concomitant]
     Indication: HYPERSENSITIVITY
     Dosage: UNK
  3. FLOVENT [Concomitant]
     Dosage: UNK, 1X/DAY
  4. CLARITIN [Concomitant]
     Dosage: UNK
  5. SINGULAIR [Concomitant]
     Dosage: UNK
  6. GUANFACINE [Concomitant]
     Dosage: 1 MG, 2X/DAY
  7. RISPERIDONE [Concomitant]
     Dosage: UNK
  8. TRIAMCINOLONE [Concomitant]
     Dosage: UNK
  9. PREVACID [Concomitant]
     Dosage: UNK

REACTIONS (1)
  - Convulsion [Unknown]
